FAERS Safety Report 21326901 (Version 1)
Quarter: 2022Q3

REPORT INFORMATION
  Report Type: Spontaneous
  Country: DK (occurrence: DK)
  Receive Date: 20220913
  Receipt Date: 20220913
  Transmission Date: 20221027
  Serious: Yes (Hospitalization)
  Sender: FDA-Public Use
  Company Number: DK-JNJFOC-20210908428

PATIENT
  Age: 11 Day
  Sex: Male

DRUGS (4)
  1. STELARA [Suspect]
     Active Substance: USTEKINUMAB
     Indication: Inflammatory bowel disease
     Route: 064
     Dates: start: 20210409
  2. STELARA [Suspect]
     Active Substance: USTEKINUMAB
     Route: 064
     Dates: start: 20210526
  3. HYDROCORTISONE [Suspect]
     Active Substance: HYDROCORTISONE
     Indication: Inflammatory bowel disease
     Route: 048
     Dates: start: 20210301, end: 20210602
  4. AZATHIOPRINE [Suspect]
     Active Substance: AZATHIOPRINE
     Indication: Inflammatory bowel disease
     Route: 048
     Dates: start: 20201006, end: 20210908

REACTIONS (4)
  - Pulmonary hypoplasia [Unknown]
  - Escherichia sepsis [Unknown]
  - Pneumonia [Unknown]
  - Foetal exposure during pregnancy [Unknown]
